FAERS Safety Report 5329466-X (Version None)
Quarter: 2007Q2

REPORT INFORMATION
  Report Type: 
  Country: None (occurrence: None)
  Receive Date: 20070221
  Receipt Date: 20060922
  Transmission Date: 20071010
  Serious: Yes (Hospitalization)
  Sender: FDA-Public Use
  Company Number: BDI-008551

PATIENT
  Sex: Male

DRUGS (2)
  1. ISOVUE-300 [Suspect]
     Indication: ABDOMINAL PAIN
     Dosage: 150 ML ONCE IV
     Route: 042
     Dates: start: 20060821, end: 20060821
  2. ISOVUE-300 [Suspect]
     Indication: COMPUTERISED TOMOGRAM
     Dosage: 150 ML ONCE IV
     Route: 042
     Dates: start: 20060821, end: 20060821

REACTIONS (1)
  - HYPERSENSITIVITY [None]
